FAERS Safety Report 9266056 (Version 2)
Quarter: 2013Q2

REPORT INFORMATION
  Report Type: Spontaneous
  Country: JP (occurrence: JP)
  Receive Date: 20130501
  Receipt Date: 20130529
  Transmission Date: 20140414
  Serious: Yes (Other)
  Sender: FDA-Public Use
  Company Number: JP-B.I. PHARMACEUTICALS,INC./RIDGEFIELD-2013-BI-12146NB

PATIENT
  Age: 49 Year
  Sex: Male

DRUGS (1)
  1. PRAZAXA [Suspect]
     Route: 048

REACTIONS (2)
  - Blood creatinine increased [Recovered/Resolved]
  - Renal impairment [Recovered/Resolved]
